FAERS Safety Report 22236369 (Version 1)
Quarter: 2023Q2

REPORT INFORMATION
  Report Type: Spontaneous
  Country: US (occurrence: None)
  Receive Date: 20230420
  Receipt Date: 20230420
  Transmission Date: 20230721
  Serious: Yes (Hospitalization, Other)
  Sender: FDA-Public Use
  Company Number: US-ROCHE-3187738

PATIENT
  Age: 58 Year
  Sex: Female
  Weight: 52.210 kg

DRUGS (3)
  1. AVASTIN [Suspect]
     Active Substance: BEVACIZUMAB
     Indication: Diabetic retinopathy
     Route: 050
  2. AVASTIN [Suspect]
     Active Substance: BEVACIZUMAB
     Route: 050
  3. METOPROLOL TARTRATE [Concomitant]
     Active Substance: METOPROLOL TARTRATE
     Indication: Hypertension
     Route: 048
     Dates: start: 2022

REACTIONS (9)
  - Myocardial infarction [Unknown]
  - Headache [Not Recovered/Not Resolved]
  - Dry skin [Not Recovered/Not Resolved]
  - Skin disorder [Not Recovered/Not Resolved]
  - Rhinitis [Not Recovered/Not Resolved]
  - Back pain [Not Recovered/Not Resolved]
  - Hypertension [Not Recovered/Not Resolved]
  - Off label use [Unknown]
  - Intraocular pressure increased [Not Recovered/Not Resolved]

NARRATIVE: CASE EVENT DATE: 20201001
